FAERS Safety Report 7287705-2 (Version None)
Quarter: 2011Q1

REPORT INFORMATION
  Report Type: 
  Country: None (occurrence: None)
  Receive Date: 20110211
  Receipt Date: 20110203
  Transmission Date: 20110831
  Serious: Yes (Hospitalization)
  Sender: FDA-Public Use
  Company Number: FR-PFIZER INC-FR-WYE-H09768809

PATIENT
  Sex: Male

DRUGS (12)
  1. SUNITINIB MALATE [Interacting]
     Indication: RENAL CANCER
     Dosage: 50.0 MG, 1X/DAY
     Route: 048
     Dates: start: 20090429
  2. TRIFLUCAN [Suspect]
     Indication: MYCOSIS FUNGOIDES
     Dosage: 100.0 MG, 1X/DAY
     Route: 048
     Dates: start: 20090429
  3. CRESTOR [Interacting]
     Indication: HYPERCHOLESTEROLAEMIA
     Dosage: 20.0 MG, 1X/DAY
     Route: 048
     Dates: end: 20090519
  4. BISOPROLOL FUMARATE [Concomitant]
     Route: 048
  5. ASPIRIN [Interacting]
     Indication: THROMBOSIS PROPHYLAXIS
     Dosage: 75.0 MG, 1X/DAY
     Route: 048
  6. GLUCOR [Concomitant]
     Route: 048
  7. CORDARONE [Interacting]
     Indication: ATRIAL FIBRILLATION
     Dosage: 100.0 MG, 1X/DAY
     Route: 048
     Dates: start: 20080101
  8. COUMADIN [Interacting]
     Indication: THROMBOSIS PROPHYLAXIS
     Dosage: 2 MG DAILY DEPENDING ON INR
     Route: 048
     Dates: start: 20080101, end: 20090518
  9. COVERSYL [Concomitant]
     Route: 048
  10. COUMADIN [Interacting]
     Dosage: 2 MG DAILY DEPENDING ON INR
     Route: 048
     Dates: start: 20090520, end: 20090524
  11. EZETROL [Concomitant]
     Dosage: UNK
     Route: 048
     Dates: end: 20090519
  12. GLYBURIDE [Concomitant]
     Dosage: UNK
     Route: 048
     Dates: end: 20090101

REACTIONS (4)
  - DRUG INTERACTION [None]
  - INTERNATIONAL NORMALISED RATIO INCREASED [None]
  - HAEMOPTYSIS [None]
  - GINGIVAL BLEEDING [None]
